FAERS Safety Report 22008785 (Version 2)
Quarter: 2023Q2

REPORT INFORMATION
  Report Type: Spontaneous
  Country: GB (occurrence: GB)
  Receive Date: 20230219
  Receipt Date: 20230411
  Transmission Date: 20230722
  Serious: Yes (Death, Hospitalization, Other)
  Sender: FDA-Public Use
  Company Number: GB-CELLTRION INC.-2023GB002415

PATIENT
  Age: 59 Year
  Sex: Female

DRUGS (24)
  1. CYCLOPHOSPHAMIDE [Suspect]
     Active Substance: CYCLOPHOSPHAMIDE
     Indication: HER2 positive breast cancer
     Dosage: 900 MG
     Route: 042
     Dates: start: 20150305, end: 20150305
  2. CYCLOPHOSPHAMIDE [Suspect]
     Active Substance: CYCLOPHOSPHAMIDE
     Indication: Breast cancer metastatic
  3. FLUOROURACIL [Suspect]
     Active Substance: FLUOROURACIL
     Indication: Breast cancer metastatic
     Dosage: 900 MILLIGRAM, 3 WEEK
     Route: 042
     Dates: start: 20150305, end: 20150305
  4. FLUOROURACIL [Suspect]
     Active Substance: FLUOROURACIL
     Indication: HER2 positive breast cancer
     Dosage: 900 MG, EVERY 3 WEEKS
     Route: 042
     Dates: start: 20150305, end: 20150305
  5. ANASTROZOLE [Suspect]
     Active Substance: ANASTROZOLE
     Indication: HER2 positive breast cancer
     Dosage: (START DATE: OCT-2015), 1 MILLIGRAM, QD
     Route: 048
  6. ANASTROZOLE [Suspect]
     Active Substance: ANASTROZOLE
     Indication: Breast cancer metastatic
     Dosage: 1 MILLIGRAM, ONCE A DAY
     Route: 048
     Dates: start: 201510
  7. DENOSUMAB [Suspect]
     Active Substance: DENOSUMAB
     Indication: Metastases to bone
     Dosage: 120 MG, Q4W
     Route: 058
     Dates: start: 20151003
  8. DENOSUMAB [Suspect]
     Active Substance: DENOSUMAB
     Indication: HER2 positive breast cancer
     Dosage: 120 MG, Q4W
     Route: 058
     Dates: start: 20151031, end: 20160728
  9. DENOSUMAB [Suspect]
     Active Substance: DENOSUMAB
     Dosage: 120 MG, Q4W
     Route: 058
     Dates: start: 20150326, end: 20160728
  10. DOCETAXEL [Suspect]
     Active Substance: DOCETAXEL
     Indication: HER2 positive breast cancer
     Dosage: 130 MG, Q3W (DRUG DISCONTINUED PLANNED NUMBER OF CYCLES COMPLETED)
     Route: 042
     Dates: start: 20150820
  11. DOCETAXEL [Suspect]
     Active Substance: DOCETAXEL
     Indication: Breast cancer metastatic
     Dosage: 140 MG, Q3W
     Route: 042
     Dates: start: 20150326, end: 20150709
  12. DOCETAXEL [Suspect]
     Active Substance: DOCETAXEL
     Dosage: 130 MG, EVERY 3 WEEKS (DRUG DISCONTINUED PLANNED NUMBER OF CYCLES COMPLETED)
     Route: 042
     Dates: start: 20150709, end: 20150820
  13. EPIRUBICIN [Suspect]
     Active Substance: EPIRUBICIN
     Indication: HER2 positive breast cancer
     Dosage: 180 MG, Q3W
     Route: 042
     Dates: start: 20150305, end: 20150305
  14. EPIRUBICIN [Suspect]
     Active Substance: EPIRUBICIN
     Indication: Breast cancer metastatic
  15. PERTUZUMAB [Suspect]
     Active Substance: PERTUZUMAB
     Indication: HER2 positive breast cancer
     Dosage: 840 MG LOADING DOSE
     Route: 042
     Dates: start: 20150326, end: 20150416
  16. PERTUZUMAB [Suspect]
     Active Substance: PERTUZUMAB
     Indication: Breast cancer metastatic
     Dosage: 420 MG, TIW MAINTENANCE DOSE
     Route: 042
     Dates: start: 20150416, end: 20160822
  17. PERTUZUMAB [Suspect]
     Active Substance: PERTUZUMAB
     Dosage: 420 MG, Q3W
     Route: 042
     Dates: start: 20160919
  18. TRASTUZUMAB [Suspect]
     Active Substance: TRASTUZUMAB
     Indication: Breast cancer metastatic
     Dosage: 450 MG, Q3W, DOSAGE FORM: POWDER FOR CONCENTRATE AND SOLUTION FOR SOLUTION FOR INFUSION
     Route: 042
     Dates: start: 20151022, end: 20160822
  19. TRASTUZUMAB [Suspect]
     Active Substance: TRASTUZUMAB
     Indication: HER2 positive breast cancer
     Dosage: MAINTAINANCE DOSE, 470 MG, TIW, DOSAGE FORM: POWDER FOR CONCENTRATE AND SOLUTION FOR SOLUTION FOR IN
     Route: 042
     Dates: start: 20150416, end: 20150719
  20. TRASTUZUMAB [Suspect]
     Active Substance: TRASTUZUMAB
     Dosage: LOADING DOSE 600 MG, DOSAGE FORM: POWDER FOR CONCENTRATE AND SOLUTION FOR SOLUTION FOR INFUSION
     Route: 042
     Dates: start: 20150326, end: 20150416
  21. TRASTUZUMAB [Suspect]
     Active Substance: TRASTUZUMAB
     Dosage: 464 MG, Q3W, DOSAGE FORM: POWDER FOR CONCENTRATE AND SOLUTION FOR SOLUTION FOR INFUSION
     Route: 042
     Dates: start: 20150709, end: 20151022
  22. TRASTUZUMAB [Suspect]
     Active Substance: TRASTUZUMAB
     Dosage: 450 MG, Q3W, DOSAGE FORM: POWDER FOR CONCENTRATE AND SOLUTION FOR SOLUTION FOR INFUSION
     Route: 042
     Dates: start: 20160912
  23. CHLORPHENIRAMINE MALEATE [Concomitant]
     Active Substance: CHLORPHENIRAMINE MALEATE
     Indication: Product used for unknown indication
     Dosage: 10 MG PRIOR TO EACH TRASTUZUMAB CYCLE
     Route: 042
     Dates: start: 20150326
  24. ACETAMINOPHEN [Concomitant]
     Active Substance: ACETAMINOPHEN
     Indication: Product used for unknown indication
     Dosage: 1000 MG PRIOR TO EACH TRASTUZUMAB CYCLE, 100 MG
     Route: 048
     Dates: start: 20150326

REACTIONS (19)
  - Catheter site bruise [Recovered/Resolved]
  - Disease progression [Fatal]
  - Nasopharyngitis [Recovered/Resolved]
  - Gastroenteritis viral [Recovered/Resolved]
  - Neuropathy peripheral [Recovered/Resolved]
  - Neuropathy peripheral [Recovered/Resolved]
  - Decreased appetite [Recovered/Resolved]
  - Oropharyngeal pain [Recovered/Resolved]
  - Cough [Recovered/Resolved]
  - Diarrhoea [Recovered/Resolved]
  - Fatigue [Recovered/Resolved]
  - Pyrexia [Recovered/Resolved]
  - Headache [Recovered/Resolved]
  - Arthralgia [Recovered/Resolved]
  - Mucosal inflammation [Recovered/Resolved]
  - Myalgia [Recovered/Resolved]
  - Vomiting [Recovered/Resolved]
  - Diarrhoea [Not Recovered/Not Resolved]
  - Fatigue [Recovered/Resolved]

NARRATIVE: CASE EVENT DATE: 20150709
